FAERS Safety Report 21187921 (Version 1)
Quarter: 2022Q3

REPORT INFORMATION
  Report Type: Spontaneous
  Country: US (occurrence: US)
  Receive Date: 20220809
  Receipt Date: 20220809
  Transmission Date: 20221026
  Serious: Yes (Other)
  Sender: FDA-Public Use
  Company Number: US-SUN PHARMACEUTICAL INDUSTRIES LTD-2022R1-347422

PATIENT
  Age: 69 Year
  Sex: Female

DRUGS (20)
  1. AMITRIPTYLINE [Interacting]
     Active Substance: AMITRIPTYLINE
     Indication: Neuralgia
     Dosage: 75 MILLIGRAM, DAILY
     Route: 065
  2. CARVEDILOL [Interacting]
     Active Substance: CARVEDILOL
     Indication: Hypertension
     Dosage: 6.25 MILLIGRAM, BID
     Route: 065
  3. OMEPRAZOLE [Interacting]
     Active Substance: OMEPRAZOLE
     Indication: Gastrooesophageal reflux disease
     Dosage: 40 MILLIGRAM, DAILY
     Route: 065
  4. DULOXETINE [Interacting]
     Active Substance: DULOXETINE
     Indication: Neuropathy peripheral
     Dosage: 60 MILLIGRAM, DAILY
     Route: 065
  5. TRAMADOL [Interacting]
     Active Substance: TRAMADOL
     Indication: Osteoarthritis
     Dosage: 50 MILLIGRAM, TID
     Route: 065
  6. HYDROXYZINE [Interacting]
     Active Substance: HYDROXYZINE HYDROCHLORIDE
     Indication: Anxiety
     Dosage: 50 MILLIGRAM, DAILY
     Route: 065
  7. ALPRAZOLAM [Concomitant]
     Active Substance: ALPRAZOLAM
     Indication: Anxiety
     Dosage: 0.5 MILLIGRAM, PRN
     Route: 065
  8. DILTIAZEM [Concomitant]
     Active Substance: DILTIAZEM
     Indication: Atrial fibrillation
     Dosage: 120 MILLIGRAM, DAILY
     Route: 065
  9. ASPIRIN [Concomitant]
     Active Substance: ASPIRIN
     Indication: Anticoagulant therapy
     Dosage: 81 MILLIGRAM, DAILY
     Route: 065
  10. APIXABAN [Concomitant]
     Active Substance: APIXABAN
     Indication: Anticoagulant therapy
     Dosage: 5 MILLIGRAM, BID
     Route: 065
  11. ALBUTEROL [Concomitant]
     Active Substance: ALBUTEROL
     Indication: Chronic obstructive pulmonary disease
     Dosage: 2 PUFFS EVERY 6 H AS NEEDED
     Route: 065
  12. ALBUTEROL\IPRATROPIUM [Concomitant]
     Active Substance: ALBUTEROL\IPRATROPIUM
     Indication: Chronic obstructive pulmonary disease
     Dosage: 1 VIAL VIA NEBULIZER FOUR TIMES DAILY
     Route: 065
  13. TIOTROPIUM [Concomitant]
     Active Substance: TIOTROPIUM
     Indication: Chronic obstructive pulmonary disease
     Dosage: 2 PUFFS ONCE DAILY
     Route: 065
  14. ATORVASTATIN [Concomitant]
     Active Substance: ATORVASTATIN
     Indication: Hyperlipidaemia
     Dosage: 40 MILLIGRAM, DAILY
     Route: 065
  15. POTASSIUM CHLORIDE [Concomitant]
     Active Substance: POTASSIUM CHLORIDE
     Indication: Hypokalaemia
     Dosage: 20MEQUNK, DAILY
     Route: 065
  16. LEVOTHYROXINE [Concomitant]
     Active Substance: LEVOTHYROXINE
     Indication: Hypothyroidism
     Dosage: 25 MICROGRAM, DAILY
     Route: 065
  17. FUROSEMIDE [Concomitant]
     Active Substance: FUROSEMIDE
     Indication: Ischaemic cardiomyopathy
     Dosage: 80 MILLIGRAM, DAILY
     Route: 065
  18. SOTALOL [Concomitant]
     Active Substance: SOTALOL
     Indication: Ischaemic cardiomyopathy
     Dosage: 120 MILLIGRAM, BID
     Route: 065
  19. GABAPENTIN [Concomitant]
     Active Substance: GABAPENTIN
     Indication: Neuropathy peripheral
     Dosage: 100 MILLIGRAM, BID
     Route: 065
  20. PREGABALIN [Concomitant]
     Active Substance: PREGABALIN
     Indication: Neuropathy peripheral
     Dosage: 150 MILLIGRAM, BID
     Route: 065

REACTIONS (3)
  - Treatment failure [Unknown]
  - Arrhythmia [Recovering/Resolving]
  - Drug-genetic interaction [Unknown]
